FAERS Safety Report 7368772-4 (Version None)
Quarter: 2011Q1

REPORT INFORMATION
  Report Type: 
  Country: None (occurrence: None)
  Receive Date: 20110314
  Receipt Date: 20110304
  Transmission Date: 20110831
  Serious: Yes (Hospitalization)
  Sender: FDA-Public Use
  Company Number: 2011SP010194

PATIENT
  Age: 68 Year
  Sex: Male
  Weight: 85 kg

DRUGS (2)
  1. DEXAMETHASONE [Suspect]
     Indication: NAUSEA
     Dosage: ;IV
     Route: 042
     Dates: start: 20110112, end: 20110112
  2. ATENOLOL [Concomitant]

REACTIONS (2)
  - INTESTINAL ANASTOMOSIS COMPLICATION [None]
  - POST PROCEDURAL COMPLICATION [None]
